FAERS Safety Report 7180435-7 (Version None)
Quarter: 2010Q4

REPORT INFORMATION
  Report Type: 
  Country: None (occurrence: None)
  Receive Date: 20101221
  Receipt Date: 20101214
  Transmission Date: 20110411
  Serious: Yes (Hospitalization)
  Sender: FDA-Public Use
  Company Number: B0690228A

PATIENT
  Sex: Female

DRUGS (2)
  1. LAMICTAL [Suspect]
     Dosage: 25MG ALTERNATE DAYS
     Route: 065
     Dates: start: 20101201
  2. DEPAKENE [Concomitant]
     Dosage: 2G PER DAY
     Route: 065

REACTIONS (2)
  - LIVER DISORDER [None]
  - RASH GENERALISED [None]
